FAERS Safety Report 11075103 (Version 1)
Quarter: 2015Q2

REPORT INFORMATION
  Report Type: Spontaneous
  Country: US (occurrence: None)
  Receive Date: 20150428
  Receipt Date: 20150428
  Transmission Date: 20150821
  Serious: Yes (Hospitalization, Other)
  Sender: FDA-Public Use
  Company Number: None

PATIENT
  Age: 63 Year
  Sex: Male

DRUGS (2)
  1. ATORVASTATIN 10 MG [Suspect]
     Active Substance: ATORVASTATIN
     Indication: BLOOD CHOLESTEROL INCREASED
     Dosage: 1, ONCE DAILY, TAKEN BY MOUTH
     Route: 048
  2. METOPROLOL [Concomitant]
     Active Substance: METOPROLOL

REACTIONS (9)
  - Pruritus [None]
  - Headache [None]
  - Abdominal pain upper [None]
  - Musculoskeletal pain [None]
  - Gait disturbance [None]
  - Dizziness [None]
  - Small intestine carcinoma [None]
  - Pain in extremity [None]
  - Chest pain [None]

NARRATIVE: CASE EVENT DATE: 20150410
